FAERS Safety Report 4462155-2 (Version None)
Quarter: 2004Q3

REPORT INFORMATION
  Report Type: 
  Country: None (occurrence: None)
  Receive Date: 20040924
  Receipt Date: 20040915
  Transmission Date: 20050211
  Serious: No
  Sender: FDA-Public Use
  Company Number: APP200400746

PATIENT
  Age: 61 Year
  Sex: Male
  Weight: 113.3993 kg

DRUGS (2)
  1. PROTAMINE SULFATE [Suspect]
     Indication: PROTHROMBIN TIME PROLONGED
     Dosage: 50-100 MG FROM TWO DIFFERENT VIALS (ONCE), INTRAVENOUS
     Route: 042
     Dates: start: 20040914, end: 20040914
  2. PROTAMINE SULFATE [Suspect]
     Indication: PROTHROMBIN TIME PROLONGED
     Dosage: 50-100 MG FROM TWO DIFFERENT VIALS (ONCE), INTRAVENOUS
     Route: 042
     Dates: start: 20040914, end: 20040914

REACTIONS (4)
  - ANAPHYLACTIC REACTION [None]
  - BRADYCARDIA [None]
  - DRUG INEFFECTIVE [None]
  - HYPOTENSION [None]
